FAERS Safety Report 16786086 (Version 1)
Quarter: 2019Q4

REPORT INFORMATION
  Report Type: Spontaneous
  Country: US (occurrence: US)
  Receive Date: 20190908
  Receipt Date: 20190908
  Transmission Date: 20200122
  Serious: Yes (Other)
  Sender: FDA-Public Use
  Company Number: None

PATIENT
  Age: 52 Year
  Sex: Male
  Weight: 140.9 kg

DRUGS (5)
  1. LABETALOL [Suspect]
     Active Substance: LABETALOL\LABETALOL HYDROCHLORIDE
     Indication: HYPERTENSION
     Dosage: ?          OTHER FREQUENCY:WITHIN 24 HOURS;?
     Route: 041
     Dates: start: 20190907, end: 20190908
  2. CARDENE [Suspect]
     Active Substance: NICARDIPINE HYDROCHLORIDE
     Dosage: ?          OTHER FREQUENCY:WITHIN 24 HOURS;?
     Route: 041
     Dates: start: 20190907
  3. ESMOLOL [Concomitant]
     Active Substance: ESMOLOL HYDROCHLORIDE
     Dates: start: 20190906, end: 20190907
  4. LABETALOL [Concomitant]
     Active Substance: LABETALOL\LABETALOL HYDROCHLORIDE
     Dates: start: 20190907, end: 20190908
  5. NICARDIPINE [Concomitant]
     Active Substance: NICARDIPINE
     Dates: start: 20190907

REACTIONS (1)
  - Angioedema [None]

NARRATIVE: CASE EVENT DATE: 20190908
